FAERS Safety Report 23352395 (Version 1)
Quarter: 2023Q4

REPORT INFORMATION
  Report Type: Spontaneous
  Country: IT (occurrence: IT)
  Receive Date: 20231229
  Receipt Date: 20231229
  Transmission Date: 20240109
  Serious: Yes (Death, Other)
  Sender: FDA-Public Use
  Company Number: IT-009507513-2312ITA008831

PATIENT
  Age: 53 Year
  Sex: Female

DRUGS (5)
  1. CEFTOLOZANE SULFATE\TAZOBACTAM SODIUM [Suspect]
     Active Substance: CEFTOLOZANE SULFATE\TAZOBACTAM SODIUM
     Indication: Pseudomonas test positive
     Dosage: 3 GR LOAD FOLLOWED BY 4.5 GR IN CONTINUOUS INFUSION
     Dates: start: 20230628, end: 20230703
  2. CEFTOLOZANE SULFATE\TAZOBACTAM SODIUM [Suspect]
     Active Substance: CEFTOLOZANE SULFATE\TAZOBACTAM SODIUM
     Dosage: 9 G/DAY IN CONTINUOUS INFUSION
     Dates: start: 20230630
  3. RECARBRIO [Suspect]
     Active Substance: CILASTATIN\IMIPENEM ANHYDROUS\RELEBACTAM ANHYDROUS
     Indication: Pseudomonas test positive
     Dosage: 1.25 EVERY 6 HOURS IN 4-HOUR INFUSION
     Dates: start: 20230703
  4. CIPROFLOXACIN [Concomitant]
     Active Substance: CIPROFLOXACIN
     Indication: Pseudomonas test positive
     Dosage: 400 MILLIGRAM, Q8H
     Dates: start: 20230630
  5. FOSFOMYCIN [Concomitant]
     Active Substance: FOSFOMYCIN
     Indication: Pseudomonas test positive
     Dosage: LOADING DOSE (LD) 4 G THEN 24 G IN CONTINUOUS INFUSION.
     Dates: start: 20230630

REACTIONS (9)
  - Death [Fatal]
  - Therapy non-responder [Unknown]
  - Respiratory failure [Unknown]
  - Central venous catheterisation [Unknown]
  - Off label use [Unknown]
  - Drug resistance [Unknown]
  - Pathogen resistance [Unknown]
  - Enterococcus test positive [Unknown]
  - Off label use [Unknown]

NARRATIVE: CASE EVENT DATE: 20230101
